FAERS Safety Report 9720341 (Version 2)
Quarter: 2013Q4

REPORT INFORMATION
  Report Type: Spontaneous
  Country: PT (occurrence: PT)
  Receive Date: 20131129
  Receipt Date: 20131227
  Transmission Date: 20140711
  Serious: Yes (Other)
  Sender: FDA-Public Use
  Company Number: PT-AMGEN-PRTSP2013084410

PATIENT
  Sex: Male

DRUGS (10)
  1. ENBREL [Suspect]
     Indication: ANKYLOSING SPONDYLITIS
     Dosage: 50 MG, UNK
     Route: 058
     Dates: start: 20130827, end: 201310
  2. ENBREL [Suspect]
     Dosage: 50 MG, UNK
     Route: 058
     Dates: start: 201310, end: 201311
  3. ENBREL [Suspect]
     Dosage: 50 MG, WEEKLY
     Route: 058
     Dates: start: 201311
  4. NICOTIBINE [Concomitant]
     Dosage: 300 MG, DAILY
  5. LEPICORTINOLO [Concomitant]
     Dosage: 5 MG, 2X/DAY
  6. RANTUDIL [Concomitant]
     Dosage: 60 MG, 2X/DAY
  7. VENLAFAXINE [Concomitant]
     Dosage: 75 MG, DAILY
  8. ENALAPRIL [Concomitant]
     Dosage: 8 MG, DAILY
  9. LYRICA [Concomitant]
     Dosage: 75 MG, DAILY
  10. SIMVASTATIN [Concomitant]
     Dosage: 40 MG, DAILY

REACTIONS (4)
  - Insomnia [Not Recovered/Not Resolved]
  - Ankylosing spondylitis [Not Recovered/Not Resolved]
  - Pain in extremity [Not Recovered/Not Resolved]
  - Neck pain [Not Recovered/Not Resolved]
